FAERS Safety Report 20015976 (Version 1)
Quarter: 2021Q4

REPORT INFORMATION
  Report Type: Spontaneous
  Country: US (occurrence: None)
  Receive Date: 20211102
  Receipt Date: 20211102
  Transmission Date: 20220303
  Serious: No
  Sender: FDA-Public Use
  Company Number: None

PATIENT
  Age: 40 Year
  Sex: Female
  Weight: 104.85 kg

DRUGS (4)
  1. ROXICODONE [Suspect]
     Active Substance: OXYCODONE HYDROCHLORIDE
     Indication: Procedural pain
     Dosage: OTHER QUANTITY : 1 TABLET(S);?FREQUENCY : EVERY 6 HOURS;?
     Route: 048
     Dates: start: 20211101, end: 20211102
  2. TRAMADOL [Concomitant]
     Active Substance: TRAMADOL
  3. DIETARY SUPPLEMENT [Concomitant]
     Active Substance: DIETARY SUPPLEMENT
  4. OXYCODONE [Concomitant]
     Active Substance: OXYCODONE

REACTIONS (13)
  - Migraine [None]
  - Hypertension [None]
  - Urinary retention [None]
  - Constipation [None]
  - Tremor [None]
  - Dizziness [None]
  - Abnormal dreams [None]
  - Emotional disorder [None]
  - Crying [None]
  - Asthenia [None]
  - Anxiety [None]
  - Procedural pain [None]
  - Feeling abnormal [None]

NARRATIVE: CASE EVENT DATE: 20211101
